FAERS Safety Report 17363267 (Version 1)
Quarter: 2020Q1

REPORT INFORMATION
  Report Type: Report from Study
  Country: CA (occurrence: CA)
  Receive Date: 20200203
  Receipt Date: 20200203
  Transmission Date: 20200409
  Serious: Yes (Hospitalization)
  Sender: FDA-Public Use
  Company Number: CA-ACTELION-A-NJ2020-200818

PATIENT
  Age: 76 Year
  Sex: Female

DRUGS (15)
  1. ATORVASTATIN [Concomitant]
     Active Substance: ATORVASTATIN
  2. OPSUMIT [Suspect]
     Active Substance: MACITENTAN
     Indication: PULMONARY ARTERIAL HYPERTENSION
     Dosage: 10 MG
     Route: 048
     Dates: start: 20190614
  3. LINAGLIPTIN [Concomitant]
     Active Substance: LINAGLIPTIN
  4. CLOPIDOGREL [Suspect]
     Active Substance: CLOPIDOGREL BISULFATE
     Indication: PRODUCT USED FOR UNKNOWN INDICATION
     Route: 048
  5. IRON [Concomitant]
     Active Substance: IRON
  6. METOLAZONE. [Concomitant]
     Active Substance: METOLAZONE
  7. FUROSEMIDE. [Concomitant]
     Active Substance: FUROSEMIDE
  8. ALLOPURINOL. [Concomitant]
     Active Substance: ALLOPURINOL
  9. REVATIO [Concomitant]
     Active Substance: SILDENAFIL CITRATE
  10. CANDESARTAN. [Concomitant]
     Active Substance: CANDESARTAN
  11. RABEPRAZOLE [Concomitant]
     Active Substance: RABEPRAZOLE
  12. ASA [Concomitant]
     Active Substance: ASPIRIN
  13. UPTRAVI [Suspect]
     Active Substance: SELEXIPAG
     Indication: PULMONARY ARTERIAL HYPERTENSION
     Dosage: UNK, QD
     Route: 048
  14. GLICLAZIDE [Concomitant]
     Active Substance: GLICLAZIDE
  15. POTASSIUM [Concomitant]
     Active Substance: POTASSIUM

REACTIONS (3)
  - Hypotension [Not Recovered/Not Resolved]
  - Inappropriate schedule of product administration [Unknown]
  - Hospitalisation [Unknown]

NARRATIVE: CASE EVENT DATE: 20200121
